FAERS Safety Report 8127704-1 (Version None)
Quarter: 2012Q1

REPORT INFORMATION
  Report Type: 
  Country: None (occurrence: None)
  Receive Date: 20120210
  Receipt Date: 20120207
  Transmission Date: 20120608
  Serious: No
  Sender: FDA-Public Use
  Company Number: US-PFIZER INC-2012033628

PATIENT
  Sex: Female
  Weight: 98.413 kg

DRUGS (4)
  1. LYRICA [Suspect]
     Indication: PAIN
     Dosage: 150 MG, 3X/DAY
     Route: 048
     Dates: start: 20111001
  2. IMITREX [Concomitant]
     Indication: MIGRAINE
     Dosage: UNK
  3. NEURONTIN [Suspect]
     Indication: PAIN
     Dosage: UNK, 1X/DAY
     Route: 048
     Dates: start: 20100601, end: 20111001
  4. VERAPAMIL [Concomitant]
     Dosage: UNK

REACTIONS (3)
  - BACK PAIN [None]
  - WEIGHT INCREASED [None]
  - STRESS [None]
